FAERS Safety Report 10355858 (Version 1)
Quarter: 2014Q3

REPORT INFORMATION
  Report Type: Report from Study
  Country: GB (occurrence: GB)
  Receive Date: 20140801
  Receipt Date: 20140801
  Transmission Date: 20150326
  Serious: Yes (Hospitalization)
  Sender: FDA-Public Use
  Company Number: GB-ABBVIE-14K-167-1264824-00

PATIENT
  Age: 50 Year
  Sex: Female
  Weight: 110 kg

DRUGS (1)
  1. HUMIRA [Suspect]
     Active Substance: ADALIMUMAB
     Indication: RHEUMATOID ARTHRITIS
     Route: 058
     Dates: start: 20131004

REACTIONS (6)
  - Photophobia [Unknown]
  - Headache [Unknown]
  - Post lumbar puncture syndrome [Unknown]
  - Pyrexia [Unknown]
  - Musculoskeletal stiffness [Unknown]
  - Vomiting [Unknown]

NARRATIVE: CASE EVENT DATE: 20131108
